FAERS Safety Report 7606675-8 (Version None)
Quarter: 2011Q3

REPORT INFORMATION
  Report Type: 
  Country: None (occurrence: None)
  Receive Date: 20110713
  Receipt Date: 20110704
  Transmission Date: 20111222
  Serious: Yes (Hospitalization)
  Sender: FDA-Public Use
  Company Number: IT-ABBOTT-11P-083-0836264-00

PATIENT
  Sex: Female
  Weight: 67 kg

DRUGS (13)
  1. CYCLOSPORINE [Concomitant]
     Indication: PROPHYLAXIS AGAINST TRANSPLANT REJECTION
     Route: 048
     Dates: start: 20070726
  2. LASOPRAZOLO [Concomitant]
     Indication: GASTRITIS PROPHYLAXIS
     Route: 048
     Dates: start: 20070710
  3. CARDURA [Concomitant]
     Indication: HYPERTENSION
     Route: 048
     Dates: start: 20101006
  4. TENORMIN [Concomitant]
     Indication: HYPERTENSION
     Route: 048
     Dates: start: 20070606
  5. LORTAAN [Concomitant]
     Indication: HYPERTENSION
     Route: 048
     Dates: start: 20080903
  6. CELLCEPT [Concomitant]
     Indication: PROPHYLAXIS AGAINST TRANSPLANT REJECTION
     Route: 048
     Dates: start: 20070606
  7. ARANESP [Concomitant]
     Indication: ANAEMIA
     Route: 048
     Dates: start: 20090702
  8. LESCOL [Concomitant]
     Indication: DYSLIPIDAEMIA
     Dates: start: 20070606
  9. ZEMPLAR [Suspect]
     Indication: HYPERPARATHYROIDISM
     Route: 048
     Dates: start: 20100616, end: 20101210
  10. COUMADIN [Concomitant]
     Indication: THROMBOSIS PROPHYLAXIS
     Route: 048
     Dates: start: 20070726
  11. LASIX [Concomitant]
     Indication: HYPERTENSION
     Route: 048
     Dates: start: 20090416
  12. NORVASC [Concomitant]
     Indication: HYPERTENSION
     Route: 048
     Dates: start: 20101020
  13. ESAPENT [Concomitant]
     Indication: DYSLIPIDAEMIA
     Route: 048
     Dates: start: 20070606

REACTIONS (5)
  - ANAEMIA [None]
  - ASTHENIA [None]
  - DYSPNOEA EXERTIONAL [None]
  - PALLOR [None]
  - RENAL ARTERY STENOSIS [None]
